FAERS Safety Report 4839166-8 (Version None)
Quarter: 2005Q4

REPORT INFORMATION
  Report Type: 
  Country: None (occurrence: None)
  Receive Date: 20051031
  Receipt Date: 20050818
  Transmission Date: 20060501
  Serious: No
  Sender: FDA-Public Use
  Company Number: 200516679US

PATIENT

DRUGS (1)
  1. KETEK [Suspect]
     Indication: CELLULITIS

REACTIONS (2)
  - RASH [None]
  - SWELLING [None]
